FAERS Safety Report 13321400 (Version 2)
Quarter: 2017Q4

REPORT INFORMATION
  Report Type: Report from Study
  Country: CA (occurrence: CA)
  Receive Date: 20170309
  Receipt Date: 20171228
  Transmission Date: 20180320
  Serious: Yes (Other)
  Sender: FDA-Public Use
  Company Number: PHHY2015CA046503

PATIENT
  Age: 41 Year
  Sex: Male

DRUGS (5)
  1. GILENYA [Suspect]
     Active Substance: FINGOLIMOD HYDROCHLORIDE
     Indication: RELAPSING-REMITTING MULTIPLE SCLEROSIS
     Dosage: UNK
     Route: 048
     Dates: start: 20110822, end: 20150414
  2. CHOLECALCIFEROL [Concomitant]
     Active Substance: CHOLECALCIFEROL
     Indication: PRODUCT USED FOR UNKNOWN INDICATION
     Dosage: 4000 U, QD
     Route: 065
  3. VITAMIN D [Concomitant]
     Active Substance: CHOLECALCIFEROL
     Indication: PRODUCT USED FOR UNKNOWN INDICATION
     Dosage: 4000 U, QD
     Route: 065
  4. BACLOFEN. [Concomitant]
     Active Substance: BACLOFEN
     Indication: PRODUCT USED FOR UNKNOWN INDICATION
     Dosage: 15 MG, QD AT BED TIME
     Route: 065
  5. GILENYA [Suspect]
     Active Substance: FINGOLIMOD HYDROCHLORIDE
     Dosage: UNK
     Route: 048
     Dates: start: 20150618

REACTIONS (18)
  - Multiple sclerosis [Unknown]
  - Mood altered [Unknown]
  - Fatigue [Unknown]
  - Dysarthria [Unknown]
  - Memory impairment [Unknown]
  - Balance disorder [Unknown]
  - Asthenia [Unknown]
  - Urinary retention [Unknown]
  - Diplopia [Unknown]
  - Dysphagia [Unknown]
  - Sensory disturbance [Unknown]
  - Visual impairment [Unknown]
  - Immunosuppression [Unknown]
  - Tinnitus [Unknown]
  - Coordination abnormal [Unknown]
  - Executive dysfunction [Unknown]
  - Multiple sclerosis relapse [Unknown]
  - Micturition urgency [Unknown]

NARRATIVE: CASE EVENT DATE: 20170811
